FAERS Safety Report 26010568 (Version 1)
Quarter: 2025Q4

REPORT INFORMATION
  Report Type: Report from Study
  Country: MX (occurrence: MX)
  Receive Date: 20251107
  Receipt Date: 20251107
  Transmission Date: 20260117
  Serious: Yes (Other)
  Sender: NOVARTIS
  Company Number: MX-002147023-NVSC2025MX171732

PATIENT
  Age: 66 Year
  Sex: Female
  Weight: 63 kg

DRUGS (1)
  1. KISQALI [Suspect]
     Active Substance: RIBOCICLIB SUCCINATE
     Indication: Breast cancer
     Dosage: 200 MG (TOOK IT LIKE FOR 20 DAYS AND REST FOR 6)
     Route: 048
     Dates: start: 202412, end: 202502

REACTIONS (2)
  - Skin cancer [Recovered/Resolved with Sequelae]
  - Fatigue [Unknown]

NARRATIVE: CASE EVENT DATE: 20250101
